FAERS Safety Report 7414792-0 (Version None)
Quarter: 2011Q2

REPORT INFORMATION
  Report Type: 
  Country: None (occurrence: None)
  Receive Date: 20110414
  Receipt Date: 20110411
  Transmission Date: 20111010
  Serious: Yes (Hospitalization, Disabling, Other)
  Sender: FDA-Public Use
  Company Number: US-PFIZER INC-2005167785

PATIENT
  Sex: Female
  Weight: 91.6 kg

DRUGS (3)
  1. DILANTIN-125 [Suspect]
     Indication: CONVULSION
     Dosage: 500MG A DAY EXCEPT 600MG WED,FRI,SUNDAY
     Route: 048
  2. VERSED [Suspect]
     Indication: BLOOD PRESSURE ABNORMAL
  3. VERSED [Suspect]
     Indication: HEART RATE IRREGULAR
     Dosage: UNK
     Route: 065
     Dates: start: 19980701, end: 19980701

REACTIONS (13)
  - ABORTION SPONTANEOUS [None]
  - MEMORY IMPAIRMENT [None]
  - GAIT DISTURBANCE [None]
  - CONVULSION [None]
  - ASTROCYTOMA [None]
  - CARDIAC ARREST [None]
  - BLOOD POTASSIUM ABNORMAL [None]
  - NASOPHARYNGITIS [None]
  - NAUSEA [None]
  - PARALYSIS [None]
  - BLOOD PRESSURE ABNORMAL [None]
  - DIABETES MELLITUS [None]
  - ANAEMIA [None]
